FAERS Safety Report 6405764-3 (Version None)
Quarter: 2009Q4

REPORT INFORMATION
  Report Type: 
  Country: None (occurrence: None)
  Receive Date: 20091019
  Receipt Date: 20091014
  Transmission Date: 20100525
  Serious: Yes (Hospitalization)
  Sender: FDA-Public Use
  Company Number: US-BAYER-200936017NA

PATIENT
  Age: 76 Year
  Sex: Male

DRUGS (8)
  1. CAMPATH [Suspect]
     Indication: CHRONIC LYMPHOCYTIC LEUKAEMIA RECURRENT
     Dosage: AS USED: 30 MG
     Route: 058
     Dates: start: 20090929, end: 20091001
  2. CAMPATH [Suspect]
     Dosage: AS USED: 45 MG
     Route: 058
     Dates: start: 20091001, end: 20091001
  3. CAMPATH [Suspect]
     Dosage: AS USED: 90 MG
     Route: 058
     Dates: start: 20091001, end: 20091003
  4. RITUXIMAB [Suspect]
     Indication: CHRONIC LYMPHOCYTIC LEUKAEMIA RECURRENT
     Dosage: AS USED: 375 MG/M2
     Route: 042
     Dates: start: 20090929, end: 20091001
  5. ACYCLOVIR [Concomitant]
  6. ALLOPURINOL [Concomitant]
  7. MEPRON [Concomitant]
  8. LOTREL [Concomitant]

REACTIONS (3)
  - HYPERSENSITIVITY [None]
  - LIVER FUNCTION TEST ABNORMAL [None]
  - PYREXIA [None]
